FAERS Safety Report 4528490-4 (Version None)
Quarter: 2004Q4

REPORT INFORMATION
  Report Type: 
  Country: None (occurrence: None)
  Receive Date: 20041216
  Receipt Date: 20041207
  Transmission Date: 20050328
  Serious: Yes (Other)
  Sender: FDA-Public Use
  Company Number: 200421940GDDC

PATIENT
  Age: 55 Year
  Sex: Male

DRUGS (4)
  1. GLYBURIDE [Suspect]
     Indication: DIABETES MELLITUS NON-INSULIN-DEPENDENT
     Route: 048
     Dates: end: 20041031
  2. ROHYPNOL [Suspect]
     Dosage: DOSE: UNK
  3. BASEN [Concomitant]
     Dosage: DOSE: UNK
  4. URSO [Concomitant]
     Dosage: DOSE: UNK

REACTIONS (1)
  - INTERSTITIAL LUNG DISEASE [None]
